FAERS Safety Report 18131360 (Version 1)
Quarter: 2020Q3

REPORT INFORMATION
  Report Type: Other
  Country: US (occurrence: US)
  Receive Date: 20200810
  Receipt Date: 20200810
  Transmission Date: 20201103
  Serious: No
  Sender: FDA-Public Use
  Company Number: US-LEADIANT BIOSCIENCES, INC.-2020STPI000257

PATIENT
  Sex: Female

DRUGS (20)
  1. HYDROXYZINE [HYDROXYZINE HYDROCHLORIDE] [Concomitant]
     Active Substance: HYDROXYZINE HYDROCHLORIDE
  2. LIDOCREAM [Concomitant]
  3. VITAMIN C + ROSEHIP [Concomitant]
  4. CALCIUM + VITAMIN D3 [Concomitant]
     Active Substance: CALCIUM CARBONATE\CHOLECALCIFEROL
  5. CUVITRU [Concomitant]
     Active Substance: HUMAN IMMUNOGLOBULIN G
  6. LYSINE [Concomitant]
     Active Substance: LYSINE
  7. MULTIVITAMIN AND MINERAL SUPPLEMENT [Concomitant]
     Active Substance: MINERALS\VITAMINS
  8. REVCOVI [Suspect]
     Active Substance: ELAPEGADEMASE-LVLR
     Indication: COMBINED IMMUNODEFICIENCY
     Dosage: 9 ML, EVERY TUESDAY AND THURSDAY
     Route: 030
     Dates: start: 20190625
  9. ACYCLOVIR [ACICLOVIR] [Concomitant]
     Active Substance: ACYCLOVIR
  10. IRON [Concomitant]
     Active Substance: IRON
  11. ALEVE [Concomitant]
     Active Substance: NAPROXEN SODIUM
  12. ARMOUR THYROID [Concomitant]
     Active Substance: THYROID, PORCINE
  13. OMEGA 3 6 9 COMPLEX [Concomitant]
  14. PROBIOTIC 10 [Concomitant]
     Active Substance: DIETARY SUPPLEMENT\PROBIOTICS
  15. XANAX [Concomitant]
     Active Substance: ALPRAZOLAM
  16. BENADRYL [Concomitant]
     Active Substance: DIPHENHYDRAMINE HYDROCHLORIDE
  17. LEXAPRO [Concomitant]
     Active Substance: ESCITALOPRAM OXALATE
  18. IODINE. [Concomitant]
     Active Substance: IODINE
  19. PLAQUENIL [Concomitant]
     Active Substance: HYDROXYCHLOROQUINE SULFATE
  20. STRATTERA [Concomitant]
     Active Substance: ATOMOXETINE HYDROCHLORIDE

REACTIONS (1)
  - Weight increased [Unknown]
